FAERS Safety Report 12602193 (Version 4)
Quarter: 2016Q3

REPORT INFORMATION
  Report Type: Spontaneous
  Country: US (occurrence: US)
  Receive Date: 20160728
  Receipt Date: 20160829
  Transmission Date: 20161109
  Serious: No
  Sender: FDA-Public Use
  Company Number: US-PFIZER INC-2016350454

PATIENT
  Age: 69 Year
  Sex: Female
  Weight: 75.74 kg

DRUGS (38)
  1. GABAPENTIN. [Concomitant]
     Active Substance: GABAPENTIN
     Dosage: 300 MG, 1X/DAY (EVERY DAY AT BEDTIME)
     Route: 048
  2. VITAMIN D [Concomitant]
     Active Substance: CHOLECALCIFEROL
     Dosage: 400 IU, 1X/DAY
     Route: 048
  3. APIXABAN [Concomitant]
     Active Substance: APIXABAN
     Dosage: UNK
  4. FEXOFENADINE [Concomitant]
     Active Substance: FEXOFENADINE\FEXOFENADINE HYDROCHLORIDE
     Dosage: 60 MG, UNK (1 TABLET PO AS DIRECTED)
     Route: 048
  5. EPOETIN ALFA [Concomitant]
     Active Substance: ERYTHROPOIETIN
     Dosage: 20000 IU, UNK
     Dates: start: 20150527, end: 20160701
  6. MONTELUKAST [Concomitant]
     Active Substance: MONTELUKAST SODIUM
     Dosage: 10 MG, 1X/DAY (QHS)
     Route: 048
  7. MORPHINE [Concomitant]
     Active Substance: MORPHINE
     Dosage: 5 MG, AS DIRECTED
     Route: 058
  8. XGEVA [Concomitant]
     Active Substance: DENOSUMAB
     Indication: METASTASES TO BONE
     Dosage: 120 MG, UNK
     Route: 058
     Dates: start: 20131106, end: 20160202
  9. LETROZOLE. [Suspect]
     Active Substance: LETROZOLE
     Indication: BREAST CANCER METASTATIC
     Dosage: 2.5 MG, 1X/DAY (1 TABLET ORALLY EVERY DAY)
     Route: 048
     Dates: start: 20140327
  10. ONDANSETRON [Concomitant]
     Active Substance: ONDANSETRON
     Indication: NAUSEA
     Dosage: 8 MG, AS NEEDED (EVERY 8 HOURS AS NEEDED)
     Route: 048
  11. APIXABAN [Concomitant]
     Active Substance: APIXABAN
     Dosage: 2.5 MG, 2X/DAY
     Route: 048
  12. NITROGLYCERIN. [Concomitant]
     Active Substance: NITROGLYCERIN
     Dosage: 0.4 MG, AS NEEDED
     Route: 060
  13. AFLURIA [Concomitant]
     Active Substance: INFLUENZA VIRUS VACCINE TRIVALENT TYPE A+B AFLURIA
     Dosage: (45 MCG (15 MCG X 3)/0.5 ML )
     Route: 030
  14. EPOETIN ALFA [Concomitant]
     Active Substance: ERYTHROPOIETIN
     Indication: NEPHROGENIC ANAEMIA
     Dosage: 20000 IU, WEEKLY
     Dates: start: 20140213, end: 20140806
  15. LETROZOLE. [Suspect]
     Active Substance: LETROZOLE
     Indication: BREAST CANCER FEMALE
  16. KAYEXALATE [Concomitant]
     Active Substance: SODIUM POLYSTYRENE SULFONATE
     Dosage: 15 G, WEEKLY (3-DAYS WEEKLY)
     Dates: start: 20160427
  17. CALCIUM +VIT D [Concomitant]
     Active Substance: CALCIUM\VITAMIN D
     Dosage: UNK, DAILY
  18. IBRANCE [Suspect]
     Active Substance: PALBOCICLIB
     Indication: BREAST CANCER METASTATIC
     Dosage: 100 MG, UNK
     Dates: start: 20160615
  19. CALCIUM CARBONATE. [Concomitant]
     Active Substance: CALCIUM CARBONATE
     Indication: BREAST CANCER FEMALE
     Dosage: 500 MG, 2X/DAY
     Route: 048
     Dates: start: 20131106, end: 20160202
  20. APIXABAN [Concomitant]
     Active Substance: APIXABAN
     Dosage: 2.5 MG, 1X/DAY (QD)
     Route: 048
  21. KAYEXALATE [Concomitant]
     Active Substance: SODIUM POLYSTYRENE SULFONATE
     Dosage: 60 ML, 2X/DAY
     Route: 048
  22. IBRANCE [Suspect]
     Active Substance: PALBOCICLIB
     Indication: BREAST CANCER FEMALE
     Dosage: 75 MG, UNK
     Dates: start: 20160616
  23. DOCUSATE [Concomitant]
     Active Substance: DOCUSATE
     Dosage: 100 MG, AS NEEDED (2 TIMES PER DAY AS NEEDED)
     Route: 048
  24. BISACODYL. [Concomitant]
     Active Substance: BISACODYL
     Dosage: 5 MG, AS NEEDED (1 TABLET(S) PO DAILY PRN)
     Route: 048
  25. BUPROPION. [Concomitant]
     Active Substance: BUPROPION
     Dosage: 300 MG, 1X/DAY
     Route: 048
  26. SIMVASTATIN. [Concomitant]
     Active Substance: SIMVASTATIN
     Dosage: 40 MG, 1X/DAY (QHS)
     Route: 048
  27. EPOETIN ALFA [Concomitant]
     Active Substance: ERYTHROPOIETIN
     Dosage: 40000 IU, UNK (D1 Q7D)
     Route: 058
     Dates: start: 20160504, end: 20160622
  28. CHOLECALCIFEROL [Concomitant]
     Active Substance: CHOLECALCIFEROL
     Indication: METASTASES TO BONE
     Dosage: 400 IU, 1X/DAY
     Route: 048
     Dates: start: 20131106, end: 20160202
  29. CHOLECALCIFEROL [Concomitant]
     Active Substance: CHOLECALCIFEROL
     Indication: BREAST CANCER FEMALE
  30. CALCIUM CARBONATE. [Concomitant]
     Active Substance: CALCIUM CARBONATE
     Indication: METASTASES TO BONE
     Dosage: 500 MG, 2X/DAY
     Route: 048
     Dates: start: 20131106, end: 20160202
  31. BIOTIN [Concomitant]
     Active Substance: BIOTIN
     Dosage: 5 MG, 1X/DAY
     Route: 048
  32. HYDROCODONE/ACETAMINOPHEN [Concomitant]
     Active Substance: ACETAMINOPHEN\HYDROCODONE
     Indication: PAIN
     Dosage: AS NEEDED (HYDROCODONE10MG, ACETAMINOPHEN 325MG)
     Route: 048
  33. IBRANCE [Suspect]
     Active Substance: PALBOCICLIB
     Dosage: 100 MG, 1X/DAY (DAYS 1 THROUGH 21 OF A 28-DAY)
  34. CARVEDILOL. [Concomitant]
     Active Substance: CARVEDILOL
     Dosage: 12.5 MG, 2X/DAY (25 MG TABLET, 0.5 TABLET)
     Route: 048
  35. PROCRIT [Concomitant]
     Active Substance: ERYTHROPOIETIN
     Dosage: 2000 IU, WEEKLY (40,000 UNIT/ML SOLUTION)
     Route: 058
  36. XGEVA [Concomitant]
     Active Substance: DENOSUMAB
     Indication: BREAST CANCER FEMALE
     Dosage: 120 MG, UNK (D1 Q28D)
     Route: 058
     Dates: start: 20160302, end: 20160720
  37. ERYTHROPOETIN [Concomitant]
     Active Substance: ERYTHROPOIETIN
     Indication: NEPHROGENIC ANAEMIA
     Dosage: UNK
  38. SINGULAIR [Concomitant]
     Active Substance: MONTELUKAST SODIUM
     Dosage: UNK

REACTIONS (8)
  - Nausea [Unknown]
  - Fatigue [Not Recovered/Not Resolved]
  - Condition aggravated [Unknown]
  - Musculoskeletal pain [Recovering/Resolving]
  - Pain [Recovering/Resolving]
  - Decreased appetite [Unknown]
  - Alopecia [Not Recovered/Not Resolved]
  - White blood cell count decreased [Unknown]
